FAERS Safety Report 21066906 (Version 4)
Quarter: 2022Q4

REPORT INFORMATION
  Report Type: Spontaneous
  Country: JP (occurrence: JP)
  Receive Date: 20220712
  Receipt Date: 20221011
  Transmission Date: 20230112
  Serious: Yes (Hospitalization, Other)
  Sender: FDA-Public Use
  Company Number: JP-ALXN-A202207961AA

PATIENT
  Age: 82 Year
  Sex: Male

DRUGS (1)
  1. ULTOMIRIS [Suspect]
     Active Substance: RAVULIZUMAB-CWVZ
     Indication: Paroxysmal nocturnal haemoglobinuria
     Dosage: 3000 MG, Q56
     Route: 042
     Dates: start: 20210810

REACTIONS (2)
  - Pulmonary tuberculosis [Recovered/Resolved]
  - Haemolysis [Unknown]

NARRATIVE: CASE EVENT DATE: 20220706
